FAERS Safety Report 14919505 (Version 1)
Quarter: 2018Q2

REPORT INFORMATION
  Report Type: Spontaneous
  Country: ZA (occurrence: ZA)
  Receive Date: 20180521
  Receipt Date: 20180521
  Transmission Date: 20180711
  Serious: Yes (Other)
  Sender: FDA-Public Use
  Company Number: ZA-PFIZER INC-2018202165

PATIENT
  Age: 73 Year
  Sex: Female

DRUGS (5)
  1. ALTOSEC /00661201/ [Suspect]
     Active Substance: OMEPRAZOLE
     Dosage: 20 MG, UNK
  2. ZOPAX [Suspect]
     Active Substance: ALPRAZOLAM
     Dosage: 0.5 MG, UNK
  3. CIPLA-SIMVASTATIN [Suspect]
     Active Substance: SIMVASTATIN
     Dosage: 20 MG, UNK
  4. PREXUM PLUS /01421201/ [Suspect]
     Active Substance: INDAPAMIDE\PERINDOPRIL ERBUMINE
     Dosage: 5/1.25MG
  5. LOMANOR [Suspect]
     Active Substance: AMLODIPINE BESYLATE
     Dosage: 10 MG, UNK

REACTIONS (1)
  - Rib fracture [Unknown]
